FAERS Safety Report 11571393 (Version 1)
Quarter: 2015Q3

REPORT INFORMATION
  Report Type: Spontaneous
  Country: US (occurrence: US)
  Receive Date: 20150916
  Receipt Date: 20150916
  Transmission Date: 20151125
  Serious: No
  Sender: FDA-Public Use
  Company Number: US-ELI_LILLY_AND_COMPANY-US200909005714

PATIENT
  Age: 78 Year
  Sex: Female
  Weight: 74.83 kg

DRUGS (3)
  1. COZAAR [Concomitant]
     Active Substance: LOSARTAN POTASSIUM
  2. ATENOLOL. [Concomitant]
     Active Substance: ATENOLOL
  3. FORTEO [Suspect]
     Active Substance: TERIPARATIDE
     Indication: OSTEOPOROSIS
     Dosage: 20 UG, DAILY (1/D)
     Dates: start: 20090911, end: 20090915

REACTIONS (4)
  - Back pain [Recovered/Resolved]
  - Lethargy [Recovered/Resolved]
  - Blood calcium increased [Recovered/Resolved]
  - Gastrointestinal pain [Recovered/Resolved]

NARRATIVE: CASE EVENT DATE: 200909
